FAERS Safety Report 6217229-2 (Version None)
Quarter: 2009Q2

REPORT INFORMATION
  Report Type: 
  Country: None (occurrence: None)
  Receive Date: 20090608
  Receipt Date: 20090528
  Transmission Date: 20091009
  Serious: Yes (Hospitalization)
  Sender: FDA-Public Use
  Company Number: FR-PFIZER INC-2009219486

PATIENT

DRUGS (1)
  1. CELEBREX [Suspect]
     Indication: ARTHRITIS
     Dosage: 200 MG, 1X/DAY
     Route: 048
     Dates: start: 20090101, end: 20090523

REACTIONS (6)
  - DYSPNOEA [None]
  - DYSSTASIA [None]
  - PYREXIA [None]
  - TRANSAMINASES INCREASED [None]
  - TREMOR [None]
  - URINARY TRACT INFECTION [None]
